FAERS Safety Report 14322078 (Version 1)
Quarter: 2017Q4

REPORT INFORMATION
  Report Type: Spontaneous
  Country: BR (occurrence: BR)
  Receive Date: 20171225
  Receipt Date: 20171225
  Transmission Date: 20180321
  Serious: Yes (Hospitalization)
  Sender: FDA-Public Use
  Company Number: BR-ACCORD-062131

PATIENT
  Age: 48 Year
  Sex: Male

DRUGS (2)
  1. CISPLATIN. [Suspect]
     Active Substance: CISPLATIN
     Indication: LARYNGEAL CANCER
     Dosage: HIGH-DOSE MONO-CHEMOTHERAPY, EVERY 21 DAYS
     Dates: start: 201611
  2. VANCOMYCIN [Suspect]
     Active Substance: VANCOMYCIN
     Indication: ANTIBIOTIC THERAPY
     Dosage: STARTED ON 13 DAY AND THEN 15 DAY: 500 MG
     Route: 042

REACTIONS (3)
  - Hypersensitivity vasculitis [Recovered/Resolved]
  - Leukopenia [Unknown]
  - Renal impairment [Recovering/Resolving]
